FAERS Safety Report 4698725-6 (Version None)
Quarter: 2005Q2

REPORT INFORMATION
  Report Type: 
  Country: None (occurrence: None)
  Receive Date: 20050622
  Receipt Date: 20050609
  Transmission Date: 20051028
  Serious: Yes (Hospitalization)
  Sender: FDA-Public Use
  Company Number: 215190

PATIENT
  Age: 67 Year
  Sex: Female
  Weight: 74.4 kg

DRUGS (18)
  1. BEVACIZUMAB (BEVACIZUMAB) PWDR + SOLVENT, INFUSION SOLN, 100MG [Suspect]
     Indication: COLORECTAL CANCER METASTATIC
     Dosage: 5 MG/KG, Q2W, INTRAVENOUS
     Route: 042
     Dates: start: 20050329
  2. FLUOROURACIL [Suspect]
     Indication: COLORECTAL CANCER METASTATIC
     Dosage: 400 MG/M2, QDX2D/14DC, INTRAVENOUS
     Route: 042
     Dates: start: 20050329
  3. LEUCOVORIN CALCIUM [Suspect]
     Indication: COLORECTAL CANCER METASTATIC
     Dosage: 200 MG/M2, QDX2D/14DC, INTRAVENOUS
     Route: 042
     Dates: start: 20050329
  4. OXALIPLATIN (OXALIPLATIN) [Suspect]
     Indication: COLON CANCER METASTATIC
     Dosage: 85 MG/M2, Q2W, INTRAVENOUS
     Route: 042
     Dates: start: 20050329
  5. ZOCOR [Concomitant]
  6. PROPOLIS (PROPOLIS) [Concomitant]
  7. MULTIVITAMIN (MULTIVITAMINS NOS) [Concomitant]
  8. CALCIUM (CALCIUM NOS) [Concomitant]
  9. VITAMIN C (ASCORBIC ACID) [Concomitant]
  10. ASPIRIN [Concomitant]
  11. TYLENOL [Concomitant]
  12. FERROUS SULFATE TAB [Concomitant]
  13. AMBIEN [Concomitant]
  14. ZOFRAN [Concomitant]
  15. ATIVAN [Concomitant]
  16. EMLA (LIDOCAINE, PRILOCAINE HYDROCHLORIDE) [Concomitant]
  17. LOPERAMIDE [Concomitant]
  18. COMPAZINE [Concomitant]

REACTIONS (8)
  - ABDOMINAL PAIN [None]
  - HAEMOGLOBIN DECREASED [None]
  - LYMPHOCYTE COUNT INCREASED [None]
  - NEUTROPENIA [None]
  - PAIN [None]
  - PELVIC ABSCESS [None]
  - PLATELET COUNT DECREASED [None]
  - WHITE BLOOD CELL COUNT DECREASED [None]
